FAERS Safety Report 11123563 (Version 2)
Quarter: 2015Q3

REPORT INFORMATION
  Report Type: Spontaneous
  Country: US (occurrence: US)
  Receive Date: 20150519
  Receipt Date: 20150717
  Transmission Date: 20151125
  Serious: No
  Sender: FDA-Public Use
  Company Number: US-009507513-1505USA008097

PATIENT
  Sex: Female

DRUGS (3)
  1. EMEND [Suspect]
     Active Substance: APREPITANT
     Dosage: 80 MG ON DAY 3, UNK
     Route: 048
     Dates: start: 201503
  2. EMEND [Suspect]
     Active Substance: APREPITANT
     Indication: PROPHYLAXIS OF NAUSEA AND VOMITING
     Dosage: 125 MG ON DAY 1, UNK
     Route: 048
     Dates: start: 201503
  3. EMEND [Suspect]
     Active Substance: APREPITANT
     Dosage: 80 MG ON DAY 2, UNK
     Route: 048
     Dates: start: 201503

REACTIONS (4)
  - Drug dose omission [Unknown]
  - Incorrect drug administration duration [Unknown]
  - No adverse event [Unknown]
  - Product quality issue [Unknown]

NARRATIVE: CASE EVENT DATE: 2015
